FAERS Safety Report 7407260-3 (Version None)
Quarter: 2011Q2

REPORT INFORMATION
  Report Type: 
  Country: None (occurrence: None)
  Receive Date: 20110411
  Receipt Date: 20110329
  Transmission Date: 20111010
  Serious: Yes (Hospitalization, Other)
  Sender: FDA-Public Use
  Company Number: PHEH2006US15259

PATIENT
  Sex: Male

DRUGS (60)
  1. PROZAC [Concomitant]
  2. MOTRIN [Concomitant]
  3. CLARINEX                                /DEN/ [Concomitant]
  4. FLEXERIL [Concomitant]
  5. PROTONIX [Concomitant]
  6. MIRAPEX [Concomitant]
  7. CITALOPRAM [Concomitant]
  8. NEXIUM [Concomitant]
     Dosage: 40 MG, QD
     Route: 048
  9. TETRACYCLINE [Concomitant]
  10. DOCUSATE SODIUM [Concomitant]
  11. OXYCONTIN [Concomitant]
  12. AMITRIPTYLINE [Concomitant]
  13. ZOLPIDEM [Concomitant]
  14. ZITHROMAX [Concomitant]
  15. AREDIA [Suspect]
     Dosage: UNK MG, UNK
     Dates: end: 20060801
  16. LANOXIN [Concomitant]
  17. FUROSEMIDE [Concomitant]
  18. ELAVIL [Concomitant]
  19. LEVAQUIN [Concomitant]
  20. ATROVENT [Concomitant]
  21. VALIUM [Concomitant]
  22. KLONOPIN [Concomitant]
  23. SINGULAIR [Concomitant]
  24. ZOFRAN [Concomitant]
  25. HALOPERIDOL [Concomitant]
  26. PREDNISONE [Concomitant]
  27. ISOSORBIDE DINITRATE [Concomitant]
  28. PRILOSEC [Concomitant]
  29. TOPROL-XL [Concomitant]
  30. POTASSIUM CHLORIDE [Concomitant]
  31. NEURONTIN [Concomitant]
  32. PREDNISOLONE [Concomitant]
  33. CHLORHEXIDINE GLUCONATE [Concomitant]
  34. VICODIN [Concomitant]
  35. HYDRALAZINE [Concomitant]
  36. DILAUDID [Concomitant]
  37. FINASTERIDE [Concomitant]
  38. FLOMAX [Concomitant]
  39. PHENERGAN EXPECTORANT W/ CODEINE [Concomitant]
  40. CHEMOTHERAPEUTICS NOS [Concomitant]
     Dosage: UNK
     Dates: start: 20001201
  41. MECLIZINE [Concomitant]
  42. NITROGLYCERIN [Concomitant]
  43. OXYCODONE [Concomitant]
  44. TESSALON [Concomitant]
  45. TYLENOL EXTRA-STRENGTH [Concomitant]
  46. CARVEDILOL [Concomitant]
  47. AMOXICILLIN AND CLAVULANATE POTASSIUM [Concomitant]
  48. AUGMENTIN '125' [Concomitant]
  49. FLONASE [Concomitant]
  50. MUCINEX [Concomitant]
  51. REGLAN [Concomitant]
  52. ZOMETA [Suspect]
     Indication: MULTIPLE MYELOMA
     Dosage: UNK
     Route: 042
  53. CLINDAMYCIN [Concomitant]
  54. VITAMIN B6 [Concomitant]
  55. CELEXA [Concomitant]
  56. CENTRUM [Concomitant]
  57. SENOKOT [Concomitant]
  58. ANTIVERT [Concomitant]
  59. MIRAPEX [Concomitant]
  60. APRESOLINE [Concomitant]

REACTIONS (97)
  - ORAL PAIN [None]
  - VISION BLURRED [None]
  - NECK PAIN [None]
  - OSTEOARTHRITIS [None]
  - CHONDROMALACIA [None]
  - PARAESTHESIA [None]
  - ELECTROCARDIOGRAM T WAVE ABNORMAL [None]
  - APNOEA [None]
  - PYREXIA [None]
  - CHRONIC OBSTRUCTIVE PULMONARY DISEASE [None]
  - SPINAL OSTEOARTHRITIS [None]
  - ATELECTASIS [None]
  - BONE DISORDER [None]
  - DENTAL PULP DISORDER [None]
  - TOOTH FRACTURE [None]
  - CEREBRAL ATROPHY [None]
  - SPINAL FUSION ACQUIRED [None]
  - HYPOAESTHESIA [None]
  - ELECTROCARDIOGRAM QT PROLONGED [None]
  - LORDOSIS [None]
  - LUNG NEOPLASM [None]
  - OSTEONECROSIS OF JAW [None]
  - DENTAL CARIES [None]
  - CERVICAL CORD COMPRESSION [None]
  - INTERVERTEBRAL DISC COMPRESSION [None]
  - CHEST PAIN [None]
  - DIZZINESS [None]
  - ENCEPHALOPATHY [None]
  - ASTHENIA [None]
  - CHOLELITHIASIS [None]
  - METASTASES TO BONE [None]
  - DYSPHAGIA [None]
  - OSTEOSCLEROSIS [None]
  - PAIN [None]
  - ARTHRITIS [None]
  - BONE PAIN [None]
  - DYSPNOEA [None]
  - VENTRICULAR EXTRASYSTOLES [None]
  - BRONCHIAL SECRETION RETENTION [None]
  - MYASTHENIA GRAVIS [None]
  - SEPSIS [None]
  - ATRIAL FIBRILLATION [None]
  - BUNDLE BRANCH BLOCK LEFT [None]
  - LEFT ATRIAL DILATATION [None]
  - PANCYTOPENIA [None]
  - ILEUS [None]
  - OSTEOPENIA [None]
  - SINUS DISORDER [None]
  - ARTHRALGIA [None]
  - HEADACHE [None]
  - ARTHROPATHY [None]
  - MUSCULOSKELETAL PAIN [None]
  - ROTATOR CUFF SYNDROME [None]
  - CHRONIC SINUSITIS [None]
  - CONFUSIONAL STATE [None]
  - UNRESPONSIVE TO STIMULI [None]
  - ELECTROCARDIOGRAM ST SEGMENT DEPRESSION [None]
  - SPUTUM DISCOLOURED [None]
  - CARDIOMEGALY [None]
  - SPINAL COMPRESSION FRACTURE [None]
  - KYPHOSIS [None]
  - PNEUMONIA [None]
  - EXTRAPYRAMIDAL DISORDER [None]
  - INTERVERTEBRAL DISC DEGENERATION [None]
  - BREATH SOUNDS ABNORMAL [None]
  - LUDWIG ANGINA [None]
  - PAIN IN JAW [None]
  - GENERAL PHYSICAL HEALTH DETERIORATION [None]
  - OSTEOMYELITIS [None]
  - ANXIETY [None]
  - SUBCUTANEOUS NODULE [None]
  - RADICULOPATHY [None]
  - LUNG INFILTRATION [None]
  - DIPLOPIA [None]
  - DEVICE MALFUNCTION [None]
  - NEUTROPENIC SEPSIS [None]
  - PULMONARY HYPERTENSION [None]
  - CONNECTIVE TISSUE DISORDER [None]
  - MASTICATION DISORDER [None]
  - ANAEMIA [None]
  - MUSCLE SPASMS [None]
  - URINARY RETENTION [None]
  - LYMPHADENOPATHY [None]
  - BACK PAIN [None]
  - PAIN IN EXTREMITY [None]
  - MENISCUS LESION [None]
  - VENOUS THROMBOSIS [None]
  - OVERDOSE [None]
  - SENSITIVITY OF TEETH [None]
  - DECREASED INTEREST [None]
  - NEUROPATHY PERIPHERAL [None]
  - MULTIPLE MYELOMA [None]
  - MENTAL DISORDER [None]
  - HYPERHIDROSIS [None]
  - HAEMOPTYSIS [None]
  - URINARY TRACT INFECTION [None]
  - CEREBROVASCULAR ACCIDENT [None]
